FAERS Safety Report 16917760 (Version 1)
Quarter: 2019Q4

REPORT INFORMATION
  Report Type: Spontaneous
  Country: DK (occurrence: DK)
  Receive Date: 20191015
  Receipt Date: 20191015
  Transmission Date: 20200122
  Serious: Yes (Other)
  Sender: FDA-Public Use
  Company Number: DK-ROCHE-2443521

PATIENT
  Age: 80 Year
  Sex: Female

DRUGS (4)
  1. BONDRONAT [IBANDRONATE SODIUM] [Suspect]
     Active Substance: IBANDRONATE SODIUM
     Route: 048
     Dates: start: 2015, end: 201505
  2. PANODIL [Concomitant]
     Active Substance: ACETAMINOPHEN
     Route: 065
     Dates: start: 20150820, end: 20180131
  3. LITHIUM. [Concomitant]
     Active Substance: LITHIUM
     Dosage: 12 MILLIMOL
     Route: 065
     Dates: start: 20151028
  4. BONDRONAT [IBANDRONATE SODIUM] [Suspect]
     Active Substance: IBANDRONATE SODIUM
     Indication: BONE DISORDER
     Route: 048
     Dates: start: 20151125, end: 201711

REACTIONS (6)
  - Mobility decreased [Not Recovered/Not Resolved]
  - Pain in extremity [Recovering/Resolving]
  - Impaired healing [Not Recovered/Not Resolved]
  - Peripheral swelling [Recovering/Resolving]
  - Femur fracture [Not Recovered/Not Resolved]
  - Osteoporosis [Not Recovered/Not Resolved]

NARRATIVE: CASE EVENT DATE: 201602
